FAERS Safety Report 14649266 (Version 1)
Quarter: 2018Q1

REPORT INFORMATION
  Report Type: Spontaneous
  Country: FR (occurrence: FR)
  Receive Date: 20180316
  Receipt Date: 20180316
  Transmission Date: 20180509
  Serious: Yes (Other)
  Sender: FDA-Public Use
  Company Number: FR-AUROBINDO-AUR-APL-2018-014057

PATIENT
  Age: 48 Year
  Sex: Male

DRUGS (2)
  1. ENTECAVIR. [Concomitant]
     Active Substance: ENTECAVIR
     Indication: CHRONIC HEPATITIS B
     Dosage: ()
  2. TENOFOVIR DISOPROXIL [Suspect]
     Active Substance: TENOFOVIR DISOPROXIL
     Indication: CHRONIC HEPATITIS B
     Dosage: ()
     Route: 065

REACTIONS (1)
  - Hepatocellular carcinoma [Unknown]
